FAERS Safety Report 10625489 (Version 5)
Quarter: 2017Q4

REPORT INFORMATION
  Report Type: Spontaneous
  Country: US (occurrence: US)
  Receive Date: 20141204
  Receipt Date: 20171220
  Transmission Date: 20180320
  Serious: Yes (Disabling, Other)
  Sender: FDA-Public Use
  Company Number: US-009507513-1204USA03743

PATIENT
  Sex: Male
  Weight: 82.86 kg

DRUGS (2)
  1. PROPECIA [Suspect]
     Active Substance: FINASTERIDE
     Dosage: 1 MG, UNK
     Route: 048
     Dates: start: 2006, end: 200808
  2. PROPECIA [Suspect]
     Active Substance: FINASTERIDE
     Indication: ALOPECIA
     Dosage: 1 MG, UNK
     Route: 048
     Dates: start: 20050419, end: 200603

REACTIONS (30)
  - Ejaculation disorder [Not Recovered/Not Resolved]
  - Pollakiuria [Recovered/Resolved]
  - Genital disorder male [Unknown]
  - Palpitations [Unknown]
  - Painful ejaculation [Unknown]
  - Prostatitis [Not Recovered/Not Resolved]
  - Dyspareunia [Not Recovered/Not Resolved]
  - Depression [Not Recovered/Not Resolved]
  - Nephrolithiasis [Unknown]
  - Haemangioma of liver [Unknown]
  - Nephrolithiasis [Unknown]
  - Penile pain [Recovered/Resolved]
  - Dysuria [Not Recovered/Not Resolved]
  - Anxiety [Not Recovered/Not Resolved]
  - Ejaculation failure [Not Recovered/Not Resolved]
  - Groin pain [Unknown]
  - Hepatic steatosis [Unknown]
  - Micturition urgency [Recovered/Resolved]
  - Hydrocele [Unknown]
  - Erectile dysfunction [Not Recovered/Not Resolved]
  - Libido decreased [Not Recovered/Not Resolved]
  - Scrotal disorder [Unknown]
  - Epididymitis [Unknown]
  - Nervousness [Unknown]
  - Cognitive disorder [Not Recovered/Not Resolved]
  - Supraventricular extrasystoles [Not Recovered/Not Resolved]
  - Disturbance in sexual arousal [Unknown]
  - Stress [Unknown]
  - Sexual dysfunction [Not Recovered/Not Resolved]
  - Urethritis [Unknown]

NARRATIVE: CASE EVENT DATE: 200603
